FAERS Safety Report 8126979-2 (Version None)
Quarter: 2011Q4

REPORT INFORMATION
  Report Type: 
  Country: None (occurrence: None)
  Receive Date: 20111227
  Receipt Date: 20111108
  Transmission Date: 20120403
  Serious: No
  Sender: FDA-Public Use
  Company Number: PHEH2011US009002

PATIENT
  Sex: Female

DRUGS (4)
  1. BACLOFEN [Concomitant]
  2. GILENYA [Suspect]
     Indication: MULTIPLE SCLEROSIS
     Dosage: 0.5 MG, DAILY, ORAL
     Route: 048
     Dates: start: 20110808
  3. ASPIRIN [Concomitant]
  4. LEXAPRO [Concomitant]

REACTIONS (2)
  - NAUSEA [None]
  - VOMITING [None]
